FAERS Safety Report 9213403 (Version 7)
Quarter: 2013Q2

REPORT INFORMATION
  Report Type: Spontaneous
  Country: GB (occurrence: GB)
  Receive Date: 20130405
  Receipt Date: 20130603
  Transmission Date: 20140414
  Serious: Yes (Other)
  Sender: FDA-Public Use
  Company Number: PHFR2013GB002040

PATIENT
  Age: 20 Year
  Sex: Male

DRUGS (3)
  1. CLOZARIL [Suspect]
     Indication: SCHIZOPHRENIA
     Dosage: UNK
     Route: 048
     Dates: start: 20121127
  2. ARIPIPRAZOLE [Concomitant]
     Dosage: UNK
  3. VENLAFAXINE [Concomitant]
     Dosage: UNK

REACTIONS (8)
  - Urinary tract infection [Unknown]
  - Bladder pain [Unknown]
  - Prostatic disorder [Unknown]
  - Malaise [Unknown]
  - Infection [Not Recovered/Not Resolved]
  - Protein total increased [Unknown]
  - Neutropenia [Recovered/Resolved]
  - Eosinophil count increased [Recovered/Resolved]
